FAERS Safety Report 18888667 (Version 7)
Quarter: 2021Q3

REPORT INFORMATION
  Report Type: Report from Study
  Country: US (occurrence: US)
  Receive Date: 20210213
  Receipt Date: 20210824
  Transmission Date: 20211014
  Serious: No
  Sender: FDA-Public Use
  Company Number: NVSC2021US025721

PATIENT
  Age: 63 Year
  Sex: Male

DRUGS (1)
  1. ENTRESTO [Suspect]
     Active Substance: SACUBITRIL\VALSARTAN
     Indication: PRODUCT USED FOR UNKNOWN INDICATION
     Dosage: 50 MG, BID (24/26 MG)
     Route: 048
     Dates: start: 20201201

REACTIONS (11)
  - Arthropathy [Recovering/Resolving]
  - Paraesthesia [Recovering/Resolving]
  - Euphoric mood [Unknown]
  - Somnolence [Recovering/Resolving]
  - Angiogram [Unknown]
  - Myalgia [Recovering/Resolving]
  - Product dose omission issue [Unknown]
  - Weight abnormal [Unknown]
  - Pain [Unknown]
  - Muscle spasms [Recovered/Resolved]
  - Wound healing normal [Recovering/Resolving]

NARRATIVE: CASE EVENT DATE: 202104
